FAERS Safety Report 8287034-4 (Version None)
Quarter: 2012Q2

REPORT INFORMATION
  Report Type: 
  Country: None (occurrence: None)
  Receive Date: 20120416
  Receipt Date: 20120402
  Transmission Date: 20120825
  Serious: Yes (Hospitalization)
  Sender: FDA-Public Use
  Company Number: JP-ROCHE-1043630

PATIENT
  Sex: Male
  Weight: 70 kg

DRUGS (8)
  1. XELODA [Suspect]
     Indication: RECTAL CANCER METASTATIC
     Dosage: DOSAGE IS UNCERTAIN.
     Route: 048
     Dates: start: 20100312, end: 20100513
  2. TS-1 [Concomitant]
     Dosage: DOSAGE IS UNCERTAIN.
     Route: 048
  3. XELODA [Suspect]
     Route: 048
     Dates: start: 20100101, end: 20100101
  4. IRINOTECAN HYDROCHLORIDE [Suspect]
     Indication: RECTAL CANCER METASTATIC
     Dosage: DOSAGE IS UNCERTAIN.
     Route: 041
     Dates: start: 20100101, end: 20100101
  5. TS-1 [Concomitant]
     Indication: RECTAL CANCER METASTATIC
     Dosage: DOSAGE IS UNCERTAIN.
     Route: 048
     Dates: start: 20100101, end: 20100101
  6. AVASTIN [Suspect]
     Indication: RECTAL CANCER METASTATIC
     Dosage: DOSAGE IS UNCERTAIN.
     Route: 041
     Dates: start: 20100514, end: 20100101
  7. AVASTIN [Suspect]
     Dosage: DOSAGE IS UNCERTAIN.
     Route: 041
     Dates: start: 20120309
  8. OXALIPLATIN [Concomitant]
     Indication: RECTAL CANCER METASTATIC
     Dosage: DOSAGE IS UNCERTAIN.
     Route: 041
     Dates: start: 20100101, end: 20100101

REACTIONS (3)
  - PALMAR-PLANTAR ERYTHRODYSAESTHESIA SYNDROME [None]
  - INTERSTITIAL LUNG DISEASE [None]
  - NEUROPATHY PERIPHERAL [None]
